FAERS Safety Report 24928507 (Version 1)
Quarter: 2025Q1

REPORT INFORMATION
  Report Type: Report from Study
  Country: US (occurrence: US)
  Receive Date: 20250205
  Receipt Date: 20250205
  Transmission Date: 20250408
  Serious: Yes (Disabling)
  Sender: pharmaAND
  Company Number: US-ROCHE-10000070710

PATIENT
  Age: 69 Year
  Sex: Female
  Weight: 82.55 kg

DRUGS (13)
  1. PEGASYS [Suspect]
     Active Substance: PEGINTERFERON ALFA-2A
     Indication: Product used for unknown indication
  2. COTELLIC [Suspect]
     Active Substance: COBIMETINIB FUMARATE
     Indication: Histiocytosis
     Dosage: TAKE 2 TABLET(S) BY MOUTH EVERY DAY
     Route: 048
     Dates: start: 202206
  3. COTELLIC [Suspect]
     Active Substance: COBIMETINIB FUMARATE
     Indication: Erdheim-Chester disease
     Dosage: TAKE TWO TABLETS BY MOUTH DAILY QUANTITY: 60
     Route: 048
  4. COTELLIC [Suspect]
     Active Substance: COBIMETINIB FUMARATE
     Indication: Metabolic disorder
     Route: 048
     Dates: start: 202208
  5. COTELLIC [Suspect]
     Active Substance: COBIMETINIB FUMARATE
     Route: 048
     Dates: start: 20250122
  6. XALATAN [Concomitant]
     Active Substance: LATANOPROST
     Indication: Glaucoma
     Dosage: APPLY 1 DROP TO BOTH EYES DAILY AT BED TIME0.005
  7. PRILOSEC [Concomitant]
     Active Substance: OMEPRAZOLE MAGNESIUM
     Indication: Abdominal pain upper
     Dosage: AKE ONCE CAP BY MOUTH DAILY 3O MINS BEFORE A MEAL
     Route: 048
  8. TENORMIN [Concomitant]
     Active Substance: ATENOLOL
     Indication: Essential hypertension
     Route: 048
  9. ULTRAM [Concomitant]
     Active Substance: TRAMADOL HYDROCHLORIDE
     Route: 048
  10. MYCELEX [Concomitant]
     Active Substance: CLOTRIMAZOLE
     Indication: Candida infection
  11. TYLENOL [Concomitant]
     Active Substance: ACETAMINOPHEN
     Route: 048
  12. KLS ASPIRIN [Concomitant]
     Dosage: TAKE ONE TABLET BY MOUTH ONE TIME DAILY
     Route: 048
  13. TRIDERM [CLOTRIMAZOLE] [Concomitant]
     Indication: Dermatitis

REACTIONS (4)
  - Gait inability [Not Recovered/Not Resolved]
  - Diarrhoea [Unknown]
  - Peripheral swelling [Unknown]
  - Joint stiffness [Unknown]
